FAERS Safety Report 16059372 (Version 1)
Quarter: 2019Q1

REPORT INFORMATION
  Report Type: Spontaneous
  Country: US (occurrence: US)
  Receive Date: 20190311
  Receipt Date: 20190311
  Transmission Date: 20190418
  Serious: Yes (Other)
  Sender: FDA-Public Use
  Company Number: US-TEVA-2019-US-1020854

PATIENT
  Sex: Male

DRUGS (3)
  1. LYRICA [Suspect]
     Active Substance: PREGABALIN
     Indication: FIBROMYALGIA
     Route: 065
  2. GABAPENTIN. [Suspect]
     Active Substance: GABAPENTIN
     Route: 065
  3. NAPROXEN SODIUM. [Suspect]
     Active Substance: NAPROXEN SODIUM
     Route: 065

REACTIONS (10)
  - Arthropathy [Unknown]
  - Neuropathy peripheral [Unknown]
  - Heat stroke [Unknown]
  - Memory impairment [Unknown]
  - Abdominal distension [Unknown]
  - Hypertension [Unknown]
  - Irritable bowel syndrome [Unknown]
  - Body temperature abnormal [Unknown]
  - Dehydration [Unknown]
  - Skin burning sensation [Unknown]
